FAERS Safety Report 8389081-0 (Version None)
Quarter: 2012Q2

REPORT INFORMATION
  Report Type: 
  Country: None (occurrence: None)
  Receive Date: 20120528
  Receipt Date: 20120521
  Transmission Date: 20120825
  Serious: Yes (Other)
  Sender: FDA-Public Use
  Company Number: PHHY2011JP89019

PATIENT
  Sex: Male
  Weight: 55 kg

DRUGS (10)
  1. NEUQUINON [Concomitant]
     Indication: CARDIAC FAILURE CHRONIC
     Dosage: 30 MG, UNK
     Route: 048
     Dates: end: 20111003
  2. DIART [Concomitant]
     Indication: CARDIAC FAILURE CHRONIC
     Dosage: 60 MG, UNK
     Route: 048
     Dates: end: 20111003
  3. LANIRAPID [Concomitant]
     Indication: CARDIAC FAILURE CHRONIC
     Dosage: 0.1 MG, UNK
     Route: 048
     Dates: end: 20111003
  4. SUNRYTHM [Concomitant]
     Indication: ARRHYTHMIA
     Dosage: 100 MG, UNK
     Route: 048
     Dates: start: 20060426, end: 20111003
  5. WARFARIN SODIUM [Concomitant]
     Indication: CARDIAC VALVE DISEASE
     Dosage: 1.5 MG, UNK
     Route: 048
     Dates: start: 20060428, end: 20111003
  6. LIVACT [Concomitant]
     Indication: HEPATIC CIRRHOSIS
     Dosage: 8.3 MG, UNK
     Route: 048
     Dates: start: 20060412, end: 20111003
  7. KALGUT [Concomitant]
     Indication: CARDIAC FAILURE CHRONIC
     Dosage: 15 MG, UNK
     Route: 048
     Dates: end: 20111003
  8. ZOMETA [Suspect]
     Indication: METASTASES TO BONE
     Dosage: 4 MG, PER ADMINSTRATION
     Route: 041
     Dates: start: 20070124
  9. RABEPRAZOLE SODIUM [Concomitant]
     Indication: GASTROOESOPHAGEAL REFLUX DISEASE
     Dosage: 10 MG, UNK
     Route: 048
     Dates: start: 20080512, end: 20111003
  10. ZOLPIDEM [Concomitant]
     Indication: INSOMNIA
     Dosage: 0.5 MG, UNK
     Route: 048
     Dates: start: 20100222, end: 20111003

REACTIONS (7)
  - OSTEOCHONDROSIS [None]
  - OEDEMA PERIPHERAL [None]
  - INSOMNIA [None]
  - JOINT SWELLING [None]
  - OSTEONECROSIS [None]
  - GASTROOESOPHAGEAL REFLUX DISEASE [None]
  - PAIN IN EXTREMITY [None]
